FAERS Safety Report 4605690-6 (Version None)
Quarter: 2005Q2

REPORT INFORMATION
  Report Type: 
  Country: None (occurrence: None)
  Receive Date: 20050217
  Receipt Date: 20041112
  Transmission Date: 20051028
  Serious: No
  Sender: FDA-Public Use
  Company Number: S04-USA-07408-01

PATIENT
  Age: 62 Year
  Sex: Male

DRUGS (11)
  1. NAMENDA [Suspect]
     Indication: INJURY
     Dosage: 20 MG QD PO
     Route: 048
     Dates: start: 20040912
  2. NAMENDA [Suspect]
     Indication: NERVOUS SYSTEM DISORDER
     Dosage: 20 MG QD PO
     Route: 048
     Dates: start: 20040912
  3. NAMENDA [Suspect]
     Indication: INJURY
     Dosage: 5 MG QD PO
     Route: 048
     Dates: start: 20040822, end: 20040828
  4. NAMENDA [Suspect]
     Indication: NERVOUS SYSTEM DISORDER
     Dosage: 5 MG QD PO
     Route: 048
     Dates: start: 20040822, end: 20040828
  5. NAMENDA [Suspect]
     Indication: INJURY
     Dosage: 10 MG QD PO
     Route: 048
     Dates: start: 20040829, end: 20040904
  6. NAMENDA [Suspect]
     Indication: NERVOUS SYSTEM DISORDER
     Dosage: 10 MG QD PO
     Route: 048
     Dates: start: 20040829, end: 20040904
  7. NAMENDA [Suspect]
     Indication: INJURY
     Dosage: 15 MG QD PO
     Route: 048
     Dates: start: 20040905, end: 20040911
  8. NAMENDA [Suspect]
     Indication: NERVOUS SYSTEM DISORDER
     Dosage: 15 MG QD PO
     Route: 048
     Dates: start: 20040905, end: 20040911
  9. HYTRIN [Concomitant]
  10. HYZAAR [Concomitant]
  11. CLARITIN [Concomitant]

REACTIONS (2)
  - NOCTURIA [None]
  - URINARY RETENTION [None]
